FAERS Safety Report 5960193-1 (Version None)
Quarter: 2008Q4

REPORT INFORMATION
  Report Type: 
  Country: None (occurrence: None)
  Receive Date: 20081120
  Receipt Date: 20081112
  Transmission Date: 20090506
  Serious: Yes (Other)
  Sender: FDA-Public Use
  Company Number: CA-ASTRAZENECA-2008UW25518

PATIENT
  Age: 70 Year
  Sex: Female

DRUGS (4)
  1. SYMBICORT [Suspect]
     Dosage: 2 PUFF Q12
     Route: 055
     Dates: start: 20060101
  2. SPIRIVA [Concomitant]
     Indication: EMPHYSEMA
     Route: 055
  3. ALBUTEROL SULFATE [Concomitant]
     Indication: EMPHYSEMA
     Dosage: 3 PUFF Q4 HOURS
     Route: 055
  4. THREE BLOOD PRESSURE MEDICATIONS [Concomitant]
     Indication: HYPERTENSION

REACTIONS (1)
  - UPPER LIMB FRACTURE [None]
